FAERS Safety Report 16752773 (Version 2)
Quarter: 2019Q3

REPORT INFORMATION
  Report Type: Spontaneous
  Country: US (occurrence: US)
  Receive Date: 20190829
  Receipt Date: 20190906
  Transmission Date: 20191005
  Serious: No
  Sender: FDA-Public Use
  Company Number: US-TEVA-2019-US-1101033

PATIENT
  Age: 67 Year
  Sex: Male

DRUGS (1)
  1. CLONIDINE. [Suspect]
     Active Substance: CLONIDINE
     Route: 062
     Dates: start: 20190820

REACTIONS (6)
  - Blood pressure increased [Unknown]
  - Papule [Unknown]
  - Rosacea [Unknown]
  - Headache [Unknown]
  - Drug hypersensitivity [Unknown]
  - Erythema [Unknown]
